FAERS Safety Report 12113714 (Version 1)
Quarter: 2016Q1

REPORT INFORMATION
  Report Type: Spontaneous
  Country: FR (occurrence: FR)
  Receive Date: 20160225
  Receipt Date: 20160225
  Transmission Date: 20160526
  Serious: Yes (Other)
  Sender: FDA-Public Use
  Company Number: FR-ASTRAZENECA-2016SE18074

PATIENT
  Sex: Female

DRUGS (2)
  1. GEFITINIB [Suspect]
     Active Substance: GEFITINIB
     Indication: NON-SMALL CELL LUNG CANCER
     Route: 048
     Dates: start: 20120323, end: 20131112
  2. GEFITINIB [Suspect]
     Active Substance: GEFITINIB
     Indication: EGFR GENE MUTATION
     Route: 048
     Dates: start: 20120323, end: 20131112

REACTIONS (1)
  - Disease progression [Unknown]
